FAERS Safety Report 22256258 (Version 1)
Quarter: 2023Q2

REPORT INFORMATION
  Report Type: Spontaneous
  Country: CN (occurrence: None)
  Receive Date: 20230426
  Receipt Date: 20230426
  Transmission Date: 20230722
  Serious: Yes (Life-Threatening, Other)
  Sender: FDA-Public Use
  Company Number: 2023A096479

PATIENT
  Age: 30 Year
  Sex: Male

DRUGS (4)
  1. LOSEC [Suspect]
     Active Substance: OMEPRAZOLE
     Indication: Duodenal ulcer
     Route: 048
  2. SUCRALFATE [Concomitant]
     Active Substance: SUCRALFATE
  3. RANITIDINE [Concomitant]
     Active Substance: RANITIDINE
  4. METRONIDAZOLE [Concomitant]
     Active Substance: METRONIDAZOLE

REACTIONS (1)
  - Anaphylactic shock [Recovering/Resolving]
